FAERS Safety Report 17776732 (Version 1)
Quarter: 2020Q2

REPORT INFORMATION
  Report Type: Spontaneous
  Country: TR (occurrence: TR)
  Receive Date: 20200513
  Receipt Date: 20200513
  Transmission Date: 20200714
  Serious: Yes (Other)
  Sender: FDA-Public Use
  Company Number: TR-PBT-000039

PATIENT
  Age: 8 Year

DRUGS (1)
  1. TACROLIMUS. [Suspect]
     Active Substance: TACROLIMUS
     Indication: PROPHYLAXIS AGAINST TRANSPLANT REJECTION
     Route: 065

REACTIONS (5)
  - Acute sinusitis [Unknown]
  - Aplastic anaemia [Unknown]
  - Adenoidal hypertrophy [Unknown]
  - Otitis media [Unknown]
  - Candida infection [Unknown]
